FAERS Safety Report 16006276 (Version 4)
Quarter: 2019Q2

REPORT INFORMATION
  Report Type: Spontaneous
  Country: JP (occurrence: JP)
  Receive Date: 20190225
  Receipt Date: 20190618
  Transmission Date: 20190711
  Serious: Yes (Hospitalization)
  Sender: FDA-Public Use
  Company Number: JP-BRISTOL-MYERS SQUIBB COMPANY-BMS-2019-019044

PATIENT
  Age: 67 Year
  Sex: Male

DRUGS (3)
  1. METHYLPREDNISOLONE NA SUCCINATE [Suspect]
     Active Substance: METHYLPREDNISOLONE SODIUM SUCCINATE
     Indication: HYPOPITUITARISM
     Dosage: 125 MILLIGRAM
     Route: 065
     Dates: start: 20190213
  2. OPDIVO [Suspect]
     Active Substance: NIVOLUMAB
     Indication: GASTRIC CANCER
     Dosage: 240 MG
     Route: 041
     Dates: start: 201810, end: 201902
  3. METHYLPREDNISOLONE NA SUCCINATE [Suspect]
     Active Substance: METHYLPREDNISOLONE SODIUM SUCCINATE
     Indication: SEROSITIS
     Route: 065

REACTIONS (3)
  - Serositis [Recovered/Resolved]
  - Substance-induced psychotic disorder [Recovered/Resolved]
  - Hypopituitarism [Recovered/Resolved]

NARRATIVE: CASE EVENT DATE: 20190109
